FAERS Safety Report 7962905-4 (Version None)
Quarter: 2011Q4

REPORT INFORMATION
  Report Type: 
  Country: None (occurrence: None)
  Receive Date: 20111207
  Receipt Date: 20111128
  Transmission Date: 20120403
  Serious: Yes (Other)
  Sender: FDA-Public Use
  Company Number: FR-ASTRAZENECA-2011SE72525

PATIENT
  Age: 26866 Day
  Sex: Male

DRUGS (7)
  1. VANCOMYCIN [Suspect]
     Indication: MENINGITIS
     Route: 042
     Dates: start: 20110930, end: 20111002
  2. TRANXENE [Concomitant]
  3. MEROPENEM [Suspect]
     Indication: MENINGITIS
     Route: 042
     Dates: start: 20110930, end: 20111002
  4. ACETAMINOPHEN [Concomitant]
     Dosage: AS REQUIRED
  5. DIAMICRON [Concomitant]
  6. ATORVASTATIN CALCIUM [Concomitant]
  7. MEROPENEM [Suspect]
     Route: 042

REACTIONS (2)
  - OVERDOSE [None]
  - RENAL FAILURE ACUTE [None]
